FAERS Safety Report 11318795 (Version 3)
Quarter: 2015Q3

REPORT INFORMATION
  Report Type: Spontaneous
  Country: US (occurrence: US)
  Receive Date: 20150729
  Receipt Date: 20150820
  Transmission Date: 20151125
  Serious: No
  Sender: FDA-Public Use
  Company Number: US-AMGEN-USASP2015075143

PATIENT
  Age: 44 Year
  Sex: Female

DRUGS (2)
  1. ENBREL [Suspect]
     Active Substance: ETANERCEPT
     Dosage: UNK UNK, UNK
     Route: 065
  2. ENBREL [Suspect]
     Active Substance: ETANERCEPT
     Indication: ANKYLOSING SPONDYLITIS
     Dosage: UNK
     Route: 065

REACTIONS (15)
  - Liquid product physical issue [Unknown]
  - Back pain [Unknown]
  - Incorrect dose administered [Unknown]
  - Memory impairment [Unknown]
  - Plantar fasciitis [Unknown]
  - Injection site extravasation [Unknown]
  - Inappropriate schedule of drug administration [Unknown]
  - Arthralgia [Unknown]
  - Neck pain [Unknown]
  - Underdose [Unknown]
  - Feeling abnormal [Unknown]
  - Pain in extremity [Unknown]
  - Muscle tightness [Unknown]
  - Injection site reaction [Unknown]
  - Injection site haemorrhage [Unknown]
